FAERS Safety Report 11984840 (Version 1)
Quarter: 2016Q1

REPORT INFORMATION
  Report Type: Spontaneous
  Country: FR (occurrence: FR)
  Receive Date: 20160201
  Receipt Date: 20160201
  Transmission Date: 20160526
  Serious: Yes (Other)
  Sender: FDA-Public Use
  Company Number: FR-NORTHSTAR HEALTHCARE HOLDINGS-FR-2016NSR000156

PATIENT

DRUGS (3)
  1. BACLOFEN. [Suspect]
     Active Substance: BACLOFEN
     Dosage: 140 MG, TID (50 MG MORNING, 50 MG NOON, 40 MG EVENING)
     Dates: start: 201402
  2. BACLOFEN. [Suspect]
     Active Substance: BACLOFEN
     Dosage: 110 MG, QD (40 MG MORNING, 40 MG NOON, 30 MG EVENING)
  3. BACLOFEN. [Suspect]
     Active Substance: BACLOFEN
     Indication: BINGE EATING
     Dosage: UNK
     Dates: start: 20131107

REACTIONS (6)
  - Dizziness [Unknown]
  - Insomnia [Unknown]
  - Tinnitus [Unknown]
  - Fatigue [Unknown]
  - Hypomania [Recovered/Resolved]
  - Off label use [Unknown]
